FAERS Safety Report 5210488-4 (Version None)
Quarter: 2007Q1

REPORT INFORMATION
  Report Type: 
  Country: None (occurrence: None)
  Receive Date: 20070116
  Receipt Date: 20070116
  Transmission Date: 20070707
  Serious: Yes (Hospitalization)
  Sender: FDA-Public Use
  Company Number: None

PATIENT
  Age: 42 Year
  Sex: Female
  Weight: 104.3273 kg

DRUGS (8)
  1. MECLIZINE [Suspect]
     Indication: VERTIGO
     Dosage: 25 MG 3 PER DAY
     Dates: start: 20051205, end: 20051230
  2. SEROQUEL [Suspect]
     Indication: BIPOLAR DISORDER
     Dosage: 25 MG 2 AT BEDTIME
     Dates: end: 20051230
  3. POTASSIUM CHLORIDE [Suspect]
     Indication: BLOOD POTASSIUM
     Dosage: 10 MEQ 1 PER DAY
     Dates: end: 20051230
  4. THYROID TAB [Suspect]
     Indication: DECREASED ACTIVITY
     Dosage: 2 GR 1 PER DAY
     Dates: end: 20051230
  5. FUROSEMIDE [Suspect]
     Indication: FLUID RETENTION
     Dosage: 20 MG 2 PER DAY
     Dates: end: 20051230
  6. PRILOSEC [Suspect]
     Indication: GASTROOESOPHAGEAL REFLUX DISEASE
     Dosage: 20MG 2 PER DAY
     Dates: end: 20051230
  7. LORAZEPAM [Suspect]
     Indication: VERTIGO
     Dosage: 20 MG 1/2 TABLET AT NOON 1 TABLET AT BEDTIME
     Dates: start: 20051208, end: 20051230
  8. AZITHROMYCIN [Suspect]
     Indication: SINUSITIS
     Dosage: 250 MG 2 PER DAY
     Dates: start: 20051223, end: 20051228

REACTIONS (2)
  - COMA [None]
  - GRAND MAL CONVULSION [None]
